FAERS Safety Report 7934894-X (Version None)
Quarter: 2011Q4

REPORT INFORMATION
  Report Type: 
  Country: None (occurrence: None)
  Receive Date: 20111122
  Receipt Date: 20111118
  Transmission Date: 20120403
  Serious: Yes (Disabling, Other)
  Sender: FDA-Public Use
  Company Number: CA-BAYER-2011-111690

PATIENT
  Age: 65 Year
  Sex: Female

DRUGS (6)
  1. GLUCOSAMINE [Concomitant]
  2. MULTI-VITAMINS [Concomitant]
  3. AVELOX [Suspect]
     Route: 048
  4. PREDNISONE TAB [Concomitant]
  5. SPIRIVA [Concomitant]
  6. ZENHALE [Concomitant]

REACTIONS (8)
  - DYSPNOEA [None]
  - ARTHRALGIA [None]
  - HEADACHE [None]
  - NAUSEA [None]
  - JOINT SWELLING [None]
  - CHEST DISCOMFORT [None]
  - MUSCLE SPASMS [None]
  - PARAESTHESIA [None]
